FAERS Safety Report 7627042-7 (Version None)
Quarter: 2011Q3

REPORT INFORMATION
  Report Type: 
  Country: None (occurrence: None)
  Receive Date: 20110721
  Receipt Date: 20110712
  Transmission Date: 20111222
  Serious: Yes (Other)
  Sender: FDA-Public Use
  Company Number: PHHY2011NL64529

PATIENT
  Age: 56 Year
  Sex: Male

DRUGS (9)
  1. INSULIN DETEMIR [Interacting]
  2. ATORVASTATIN [Concomitant]
  3. GLIMEPIRIDE [Interacting]
  4. INSULIN ASPART [Interacting]
  5. METFORMIN HYDROCHLORIDE [Suspect]
  6. PREGABALIN [Interacting]
     Indication: NEURALGIA
     Dosage: 150 MG, BID
  7. DICLOFENAC [Concomitant]
  8. OXYCODONE HCL [Concomitant]
  9. ENALAPRIL MALEATE AND HYDROCHLOROTHIAZIDE [Concomitant]

REACTIONS (2)
  - HYPOGLYCAEMIA [None]
  - DRUG INTERACTION [None]
